FAERS Safety Report 12530287 (Version 1)
Quarter: 2016Q3

REPORT INFORMATION
  Report Type: Spontaneous
  Country: US (occurrence: None)
  Receive Date: 20160705
  Receipt Date: 20160705
  Transmission Date: 20161109
  Serious: Yes (Other)
  Sender: FDA-Public Use
  Company Number: None

PATIENT
  Age: 49 Year
  Sex: Female
  Weight: 106.14 kg

DRUGS (6)
  1. BYDUREON [Suspect]
     Active Substance: EXENATIDE
     Indication: TYPE 2 DIABETES MELLITUS
     Route: 058
     Dates: start: 20160403, end: 20160605
  2. LISINOPRIL. [Concomitant]
     Active Substance: LISINOPRIL
  3. ESTRADIOL. [Concomitant]
     Active Substance: ESTRADIOL
  4. TANZEUM [Concomitant]
     Active Substance: ALBIGLUTIDE
  5. MELOXICAM. [Concomitant]
     Active Substance: MELOXICAM
  6. NEXIUM [Concomitant]
     Active Substance: ESOMEPRAZOLE MAGNESIUM

REACTIONS (3)
  - Injection site pruritus [None]
  - Injection site mass [None]
  - Injection site erythema [None]

NARRATIVE: CASE EVENT DATE: 20160403
